FAERS Safety Report 23318567 (Version 2)
Quarter: 2023Q4

REPORT INFORMATION
  Report Type: Report from Study
  Country: US (occurrence: US)
  Receive Date: 20231220
  Receipt Date: 20231222
  Transmission Date: 20240110
  Serious: Yes (Other)
  Sender: FDA-Public Use
  Company Number: US-ABBVIE-5539839

PATIENT
  Sex: Male

DRUGS (2)
  1. SKYRIZI [Suspect]
     Active Substance: RISANKIZUMAB-RZAA
     Indication: Psoriasis
     Route: 058
  2. JAKAFI [Concomitant]
     Active Substance: RUXOLITINIB
     Indication: Graft versus host disease
     Dates: start: 2013

REACTIONS (4)
  - Transplant [Not Recovered/Not Resolved]
  - Candida infection [Not Recovered/Not Resolved]
  - Skin cancer [Unknown]
  - Unevaluable event [Not Recovered/Not Resolved]

NARRATIVE: CASE EVENT DATE: 20230101
